FAERS Safety Report 4427759-1 (Version None)
Quarter: 2004Q3

REPORT INFORMATION
  Report Type: 
  Country: None (occurrence: None)
  Receive Date: 20040817
  Receipt Date: 20040408
  Transmission Date: 20050211
  Serious: Yes (Death)
  Sender: FDA-Public Use
  Company Number: DE-GLAXOSMITHKLINE-D0043567A

PATIENT
  Age: 29 Year
  Sex: Female

DRUGS (3)
  1. ALBUTEROL SULFATE [Suspect]
     Indication: ASTHMA
     Route: 055
  2. SEREVENT [Suspect]
     Indication: ASTHMA
     Route: 055
  3. BUDESONIDE [Concomitant]
     Dosage: 1PUFF TWICE PER DAY
     Route: 055

REACTIONS (5)
  - CARDIAC ARREST [None]
  - CARDIOGENIC SHOCK [None]
  - CIRCULATORY COLLAPSE [None]
  - DYSPNOEA [None]
  - VENTRICULAR FIBRILLATION [None]
